FAERS Safety Report 8052313-2 (Version None)
Quarter: 2012Q1

REPORT INFORMATION
  Report Type: 
  Country: None (occurrence: None)
  Receive Date: 20120118
  Receipt Date: 20120113
  Transmission Date: 20120608
  Serious: Yes (Other)
  Sender: FDA-Public Use
  Company Number: TW-JNJFOC-20111212342

PATIENT
  Age: 50 Year
  Sex: Male

DRUGS (2)
  1. MINOXIDIL [Suspect]
     Route: 061
  2. MINOXIDIL [Suspect]
     Indication: PRODUCT USED FOR UNKNOWN INDICATION
     Dosage: EACH MORNING AND NIGHT
     Route: 061
     Dates: start: 20111205, end: 20111219

REACTIONS (1)
  - HYPERSENSITIVITY [None]
